FAERS Safety Report 9209444 (Version 1)
Quarter: 2013Q2

REPORT INFORMATION
  Report Type: Spontaneous
  Country: US (occurrence: None)
  Receive Date: 20130403
  Receipt Date: 20130403
  Transmission Date: 20140414
  Serious: Yes (Disabling, Congenital Anomaly)
  Sender: FDA-Public Use
  Company Number: None

PATIENT
  Sex: Female
  Weight: 65.77 kg

DRUGS (1)
  1. MIRALAX - MERCK [Suspect]
     Indication: BOWEL PREPARATION
     Dosage: AS REQUIRED FOR PREP   ONCE  ORALLY?TWICE IN AUGUST
     Route: 048

REACTIONS (8)
  - Muscle spasms [None]
  - Burning sensation [None]
  - Neuropathy peripheral [None]
  - Pain [None]
  - Renal pain [None]
  - Cognitive disorder [None]
  - Anxiety [None]
  - Early retirement [None]
